FAERS Safety Report 8508240-7 (Version None)
Quarter: 2012Q3

REPORT INFORMATION
  Report Type: 
  Country: None (occurrence: None)
  Receive Date: 20120713
  Receipt Date: 20120706
  Transmission Date: 20120928
  Serious: Yes (Other)
  Sender: FDA-Public Use
  Company Number: JP-PFIZER INC-2012166711

PATIENT
  Age: 60 Year
  Sex: Female

DRUGS (2)
  1. LEVOTHYROXINE SODIUM [Concomitant]
     Route: 048
  2. AMLODIPINE [Suspect]
     Indication: HYPERTENSION
     Dosage: 2.5 MG, 1X/DAY
     Route: 048

REACTIONS (1)
  - BLOOD CREATINE PHOSPHOKINASE INCREASED [None]
